FAERS Safety Report 24314840 (Version 2)
Quarter: 2024Q4

REPORT INFORMATION
  Report Type: Report from Study
  Country: GB (occurrence: GB)
  Receive Date: 20240913
  Receipt Date: 20241024
  Transmission Date: 20250114
  Serious: No
  Sender: UCB
  Company Number: GB-UCBSA-2024044697

PATIENT
  Age: 35 Year
  Sex: Female

DRUGS (1)
  1. BIMEKIZUMAB [Suspect]
     Active Substance: BIMEKIZUMAB
     Indication: Psoriasis
     Dosage: UNK
     Route: 058
     Dates: start: 202408

REACTIONS (3)
  - Device issue [Unknown]
  - Device leakage [Unknown]
  - Extra dose administered [Unknown]

NARRATIVE: CASE EVENT DATE: 20240801
